FAERS Safety Report 20339338 (Version 1)
Quarter: 2022Q1

REPORT INFORMATION
  Report Type: Spontaneous
  Country: GB (occurrence: GB)
  Receive Date: 20220117
  Receipt Date: 20220117
  Transmission Date: 20220423
  Serious: Yes (Other)
  Sender: FDA-Public Use
  Company Number: None

PATIENT
  Age: 41 Year
  Sex: Female
  Weight: 68 kg

DRUGS (1)
  1. CLARITHROMYCIN [Suspect]
     Active Substance: CLARITHROMYCIN
     Indication: Folliculitis
     Dosage: 1000 MILLIGRAM DAILY;
     Route: 048
     Dates: start: 20211229, end: 20220103

REACTIONS (12)
  - Dysgeusia [Not Recovered/Not Resolved]
  - Migraine [Not Recovered/Not Resolved]
  - Joint stiffness [Not Recovered/Not Resolved]
  - Gingival pain [Not Recovered/Not Resolved]
  - Nausea [Unknown]
  - Hangover [Unknown]
  - Pain [Unknown]
  - Decreased appetite [Unknown]
  - Dry mouth [Recovering/Resolving]
  - Dry eye [Recovering/Resolving]
  - Abdominal discomfort [Recovering/Resolving]
  - Somnolence [Recovered/Resolved with Sequelae]

NARRATIVE: CASE EVENT DATE: 20211229
